FAERS Safety Report 23167613 (Version 3)
Quarter: 2025Q2

REPORT INFORMATION
  Report Type: Spontaneous
  Country: US (occurrence: US)
  Receive Date: 20231109
  Receipt Date: 20250510
  Transmission Date: 20250717
  Serious: Yes (Hospitalization)
  Sender: SANOFI AVENTIS
  Company Number: US-SA-SAC20231102000901

PATIENT
  Age: 65 Year
  Sex: Male
  Weight: 70.31 kg

DRUGS (16)
  1. DUPIXENT [Suspect]
     Active Substance: DUPILUMAB
     Indication: Asthma
     Dosage: 300 MG, QOW
     Route: 058
     Dates: start: 20231002, end: 20231016
  2. DUPIXENT [Suspect]
     Active Substance: DUPILUMAB
     Dosage: 300 MG, QOW
     Route: 058
     Dates: start: 20240408
  3. METOPROLOL TARTRATE [Concomitant]
     Active Substance: METOPROLOL TARTRATE
  4. BENZONATATE [Concomitant]
     Active Substance: BENZONATATE
  5. CITALOPRAM [Concomitant]
     Active Substance: CITALOPRAM
  6. ATORVASTATIN CALCIUM [Concomitant]
     Active Substance: ATORVASTATIN CALCIUM
  7. AMLODIPINE BESYLATE [Concomitant]
     Active Substance: AMLODIPINE BESYLATE
  8. ALBUTEROL SULFATE [Concomitant]
     Active Substance: ALBUTEROL SULFATE
  9. FLUTICASONE [Concomitant]
     Active Substance: FLUTICASONE
  10. ALBUTEROL SULFATE [Concomitant]
     Active Substance: ALBUTEROL SULFATE
  11. AZELASTINE [Concomitant]
     Active Substance: AZELASTINE
  12. TRAZODONE [Concomitant]
     Active Substance: TRAZODONE HYDROCHLORIDE
  13. VITAMINS NOS [Concomitant]
     Active Substance: VITAMINS
  14. ZAFIRLUKAST [Concomitant]
     Active Substance: ZAFIRLUKAST
  15. ELIQUIS [Concomitant]
     Active Substance: APIXABAN
  16. HYDROCORT [HYDROCORTISONE] [Concomitant]

REACTIONS (5)
  - Hospitalisation [Recovered/Resolved]
  - Vision blurred [Recovered/Resolved]
  - Hypersensitivity [Unknown]
  - Arthralgia [Recovered/Resolved]
  - Drug ineffective [Unknown]

NARRATIVE: CASE EVENT DATE: 20231001
